FAERS Safety Report 6317489-3 (Version None)
Quarter: 2009Q3

REPORT INFORMATION
  Report Type: 
  Country: None (occurrence: None)
  Receive Date: 20090821
  Receipt Date: 20090813
  Transmission Date: 20100115
  Serious: Yes (Hospitalization, Disabling)
  Sender: FDA-Public Use
  Company Number: US-KINGPHARMUSA00001-K200900981

PATIENT
  Age: 27 Year
  Sex: Male

DRUGS (4)
  1. ALTACE [Suspect]
     Dosage: 5 MG, QD
     Route: 048
  2. LASIX [Suspect]
     Dosage: 40 MG, QD
     Route: 048
  3. ZOLINZA [Suspect]
     Indication: MYCOSIS FUNGOIDES REFRACTORY
     Dosage: 4 U, QD
     Route: 048
     Dates: start: 20071101
  4. CARDENSIEL [Suspect]
     Dosage: 3.75 MG, QD
     Route: 048

REACTIONS (3)
  - EXTREMITY NECROSIS [None]
  - PERINEAL PAIN [None]
  - ULCER [None]
